FAERS Safety Report 13687157 (Version 1)
Quarter: 2017Q2

REPORT INFORMATION
  Report Type: Spontaneous
  Country: GB (occurrence: GB)
  Receive Date: 20170623
  Receipt Date: 20170623
  Transmission Date: 20170830
  Serious: Yes (Other)
  Sender: FDA-Public Use
  Company Number: GB-TEVA-778623ACC

PATIENT
  Sex: Female

DRUGS (2)
  1. METFORMIN - NON TEVA [Suspect]
     Active Substance: METFORMIN HYDROCHLORIDE
     Route: 065
  2. METFORMIN [Suspect]
     Active Substance: METFORMIN HYDROCHLORIDE
     Route: 065

REACTIONS (3)
  - Cerebrovascular accident [Unknown]
  - Choking [Unknown]
  - Dysphagia [Unknown]
